FAERS Safety Report 5147151-4 (Version None)
Quarter: 2006Q4

REPORT INFORMATION
  Report Type: 
  Country: None (occurrence: None)
  Receive Date: 20061108
  Receipt Date: 20061108
  Transmission Date: 20070319
  Serious: Yes (Hospitalization)
  Sender: FDA-Public Use
  Company Number: None

PATIENT
  Age: 43 Year
  Sex: Female
  Weight: 83.4619 kg

DRUGS (14)
  1. FUROSEMIDE [Suspect]
     Indication: OEDEMA
     Dosage: 40 MG   BID   PO
     Route: 048
     Dates: start: 20060901, end: 20061107
  2. ALENDRONATE SODIUM [Concomitant]
  3. ATENOLOL [Concomitant]
  4. BACLOFEN [Concomitant]
  5. CLOPIDROGEL [Concomitant]
  6. FLUOXETINE [Concomitant]
  7. GUAIFENESIN [Concomitant]
  8. LOVASTATIN [Concomitant]
  9. METOCLOPRAMIDE [Concomitant]
  10. MOXIFLOXACIN HCL [Concomitant]
  11. NITROGLYCERIN [Concomitant]
  12. POTASSIUM CHLORIDE [Concomitant]
  13. SODIUM CHLORIDE [Concomitant]
  14. TRAMADOL HCL [Concomitant]

REACTIONS (6)
  - AGITATION [None]
  - HEPATIC STEATOSIS [None]
  - HYPOKALAEMIA [None]
  - MALAISE [None]
  - PANCREATITIS [None]
  - TREATMENT NONCOMPLIANCE [None]
